FAERS Safety Report 8625136-0 (Version None)
Quarter: 2012Q3

REPORT INFORMATION
  Report Type: 
  Country: None (occurrence: None)
  Receive Date: 20120827
  Receipt Date: 20120823
  Transmission Date: 20120928
  Serious: Yes (Other)
  Sender: FDA-Public Use
  Company Number: DE-GLAXOSMITHKLINE-D0076828A

PATIENT
  Sex: Male
  Weight: 73 kg

DRUGS (5)
  1. LAMICTAL [Suspect]
     Dosage: 2100MG SINGLE DOSE
     Route: 048
     Dates: start: 20120823
  2. KEPPRA [Suspect]
     Dosage: 14000MG SINGLE DOSE
     Route: 048
     Dates: start: 20120823
  3. LYRICA [Suspect]
     Dosage: 1500MG SINGLE DOSE
     Route: 048
     Dates: start: 20120823
  4. METHIONINE CAP [Suspect]
     Dosage: 150MG SINGLE DOSE
     Route: 048
     Dates: start: 20120823
  5. CITALOPRAM HYDROBROMIDE [Suspect]
     Dosage: 100MG SINGLE DOSE
     Route: 048
     Dates: start: 20120823

REACTIONS (2)
  - INTENTIONAL OVERDOSE [None]
  - SUICIDE ATTEMPT [None]
